FAERS Safety Report 4414917-5 (Version None)
Quarter: 2004Q3

REPORT INFORMATION
  Report Type: 
  Country: None (occurrence: None)
  Receive Date: 20040729
  Receipt Date: 20040713
  Transmission Date: 20050211
  Serious: Yes (Death)
  Sender: FDA-Public Use
  Company Number: DSA_70351_2004

PATIENT
  Age: 91 Year
  Sex: Male

DRUGS (1)
  1. MORPHINE SULFATE [Suspect]
     Dosage: 100 MG ONCE
     Dates: start: 20031201, end: 20031210

REACTIONS (1)
  - MEDICATION ERROR [None]
